FAERS Safety Report 5449821-7 (Version None)
Quarter: 2007Q3

REPORT INFORMATION
  Report Type: 
  Country: None (occurrence: None)
  Receive Date: 20070910
  Receipt Date: 20070828
  Transmission Date: 20080115
  Serious: Yes (Death, Hospitalization)
  Sender: FDA-Public Use
  Company Number: 2006BI016698

PATIENT
  Age: 56 Year
  Sex: Female

DRUGS (4)
  1. AVONEX [Suspect]
     Indication: RELAPSING-REMITTING MULTIPLE SCLEROSIS
     Dosage: 30 MG;QM;IM
     Route: 030
     Dates: start: 20061104, end: 20070127
  2. CITALOPRAM [Concomitant]
  3. LORAZEPAM [Concomitant]
  4. MULTI-VITAMIN [Concomitant]

REACTIONS (8)
  - ANXIETY [None]
  - BALANCE DISORDER [None]
  - BRAIN NEOPLASM MALIGNANT [None]
  - DIZZINESS [None]
  - FEELING ABNORMAL [None]
  - GAIT DISTURBANCE [None]
  - MULTIPLE SCLEROSIS [None]
  - SENSATION OF HEAVINESS [None]
